FAERS Safety Report 13885427 (Version 2)
Quarter: 2017Q3

REPORT INFORMATION
  Report Type: Spontaneous
  Country: US (occurrence: US)
  Receive Date: 20170821
  Receipt Date: 20170920
  Transmission Date: 20171127
  Serious: No
  Sender: FDA-Public Use
  Company Number: US-PFIZER INC-2017348850

PATIENT
  Age: 25 Year
  Sex: Female

DRUGS (1)
  1. CYTOMEL [Suspect]
     Active Substance: LIOTHYRONINE SODIUM
     Dosage: 75 UG, DAILY (2 TABLETS IN MORNING AND ONE IN THE AFTERNOON]
     Dates: start: 20170804, end: 20170809

REACTIONS (2)
  - Eczema [Recovered/Resolved]
  - Eye inflammation [Recovered/Resolved]
